FAERS Safety Report 19799628 (Version 1)
Quarter: 2021Q3

REPORT INFORMATION
  Report Type: Spontaneous
  Country: CN (occurrence: CN)
  Receive Date: 20210907
  Receipt Date: 20210907
  Transmission Date: 20211014
  Serious: Yes (Other)
  Sender: FDA-Public Use
  Company Number: ALC2021CN005010

PATIENT
  Age: 50 Year
  Sex: Male
  Weight: 77 kg

DRUGS (1)
  1. FLUORESCITE [Suspect]
     Active Substance: FLUORESCEIN SODIUM
     Indication: ANGIOGRAM
     Dosage: 0.5 G, QD
     Route: 042
     Dates: start: 20210727, end: 20210727

REACTIONS (1)
  - Anaphylactic shock [Recovering/Resolving]

NARRATIVE: CASE EVENT DATE: 20210727
